FAERS Safety Report 17299776 (Version 1)
Quarter: 2020Q1

REPORT INFORMATION
  Report Type: Spontaneous
  Country: US (occurrence: US)
  Receive Date: 20200122
  Receipt Date: 20200122
  Transmission Date: 20200409
  Serious: No
  Sender: FDA-Public Use
  Company Number: US-ALLERGAN-1904870US

PATIENT
  Sex: Female

DRUGS (3)
  1. RESTASIS [Suspect]
     Active Substance: CYCLOSPORINE
     Indication: DRY EYE
     Dosage: 2 GTT, QD
     Route: 047
     Dates: start: 201812
  2. UNKNOWN MEDICATION FOR MIGRAINE [Concomitant]
     Indication: MIGRAINE
  3. UNKNOWN EYE DROPS PRESERVATIVE FREE [Concomitant]
     Dosage: UNK (DURING THE DAY)

REACTIONS (6)
  - Photophobia [Not Recovered/Not Resolved]
  - Product container issue [Unknown]
  - Inappropriate schedule of product administration [Unknown]
  - Accidental exposure to product [Unknown]
  - Foreign body sensation in eyes [Not Recovered/Not Resolved]
  - Eye irritation [Not Recovered/Not Resolved]

NARRATIVE: CASE EVENT DATE: 201812
